FAERS Safety Report 5670256-6 (Version None)
Quarter: 2008Q1

REPORT INFORMATION
  Report Type: 
  Country: None (occurrence: None)
  Receive Date: 20080318
  Receipt Date: 20080307
  Transmission Date: 20080703
  Serious: Yes (Hospitalization, Other)
  Sender: FDA-Public Use
  Company Number: US-JNJFOC-20080302338

PATIENT
  Sex: Female
  Weight: 65.77 kg

DRUGS (12)
  1. FENTANYL TRANSDERMAL SYSTEM [Suspect]
     Indication: SCIATICA
     Route: 062
  2. FENTANYL TRANSDERMAL SYSTEM [Suspect]
     Indication: COMPRESSION FRACTURE
     Route: 062
  3. CELEBREX [Concomitant]
     Indication: INFLAMMATION
     Route: 048
  4. COZAAR [Concomitant]
     Indication: HYPERTENSION
     Route: 048
  5. TRIAMTERENE [Concomitant]
     Indication: HYPERTENSION
     Route: 048
  6. TOPROL-XL [Concomitant]
     Indication: HYPERTENSION
     Route: 048
  7. PROTONIX [Concomitant]
     Indication: GASTROOESOPHAGEAL REFLUX DISEASE
     Route: 048
  8. CELEXA [Concomitant]
     Indication: ANTIDEPRESSANT THERAPY
     Route: 048
  9. PREDNISONE TAB [Concomitant]
     Indication: POLYMYALGIA RHEUMATICA
     Route: 048
  10. DETROL [Concomitant]
     Indication: INCONTINENCE
     Route: 048
  11. FOSAMAX [Concomitant]
     Indication: OSTEOPOROSIS
     Route: 048
  12. GABAPENTIN [Concomitant]
     Indication: SCIATICA
     Route: 048

REACTIONS (9)
  - COMPRESSION FRACTURE [None]
  - COORDINATION ABNORMAL [None]
  - FALL [None]
  - LETHARGY [None]
  - PAIN IN EXTREMITY [None]
  - PNEUMONIA ASPIRATION [None]
  - PULMONARY FUNCTION TEST DECREASED [None]
  - RENAL IMPAIRMENT [None]
  - SOMNOLENCE [None]
